FAERS Safety Report 4910916-5 (Version None)
Quarter: 2006Q1

REPORT INFORMATION
  Report Type: 
  Country: None (occurrence: None)
  Receive Date: 20060214
  Receipt Date: 20060130
  Transmission Date: 20060701
  Serious: Yes (Life-Threatening, Hospitalization)
  Sender: FDA-Public Use
  Company Number: JP-ROCHE-434053

PATIENT
  Age: 66 Year
  Sex: Female

DRUGS (9)
  1. PANALDINE [Suspect]
     Indication: ANGINA PECTORIS
     Dosage: OTHER INDICATION: AFTER PERCUTANEOUS CORONARY INTERVENTION.
     Route: 048
     Dates: start: 20051216, end: 20060117
  2. ASPIRIN [Concomitant]
     Indication: ANGINA PECTORIS
     Route: 048
     Dates: start: 20051216, end: 20060117
  3. MEVALOTIN [Concomitant]
     Indication: ANGINA PECTORIS
     Route: 048
     Dates: start: 20051216, end: 20060117
  4. TAKEPRON [Concomitant]
     Route: 048
     Dates: start: 20051216, end: 20060117
  5. RENIVACE [Concomitant]
     Indication: ANGINA PECTORIS
     Dosage: SECOND INDICATION: HYPERTENSION.
     Route: 048
     Dates: start: 20051216, end: 20060117
  6. BASEN [Concomitant]
     Indication: DIABETES MELLITUS
     Route: 048
     Dates: start: 20051216, end: 20060117
  7. PURSENNID [Concomitant]
     Indication: CONSTIPATION
     Route: 048
     Dates: start: 20051216, end: 20060117
  8. MAGNESIUM [Concomitant]
     Indication: CONSTIPATION
     Route: 048
     Dates: start: 20051216, end: 20060117
  9. AMOBAN [Concomitant]
     Indication: INSOMNIA
     Route: 048
     Dates: start: 20051216, end: 20060117

REACTIONS (5)
  - HEPATITIS FULMINANT [None]
  - HEPATOCELLULAR DAMAGE [None]
  - MALAISE [None]
  - PYREXIA [None]
  - VOMITING [None]
